FAERS Safety Report 5884548-9 (Version None)
Quarter: 2008Q3

REPORT INFORMATION
  Report Type: 
  Country: None (occurrence: None)
  Receive Date: 20080916
  Receipt Date: 20080909
  Transmission Date: 20090109
  Serious: Yes (Other)
  Sender: FDA-Public Use
  Company Number: PHEH2008US07348

PATIENT

DRUGS (1)
  1. RECLAST [Suspect]

REACTIONS (2)
  - FALL [None]
  - FRACTURE [None]
